FAERS Safety Report 15121447 (Version 3)
Quarter: 2018Q3

REPORT INFORMATION
  Report Type: Spontaneous
  Country: NL (occurrence: NL)
  Receive Date: 20180709
  Receipt Date: 20180720
  Transmission Date: 20181010
  Serious: Yes (Death, Hospitalization, Other)
  Sender: FDA-Public Use
  Company Number: NL-MYLANLABS-2018M1049827

PATIENT
  Age: 50 Year

DRUGS (11)
  1. LOPERAMIDE [Concomitant]
     Active Substance: LOPERAMIDE
     Indication: PRODUCT USED FOR UNKNOWN INDICATION
     Dosage: 1 MG, 3X/DAY
  2. ESOMEPRAZOL                        /01479301/ [Concomitant]
     Active Substance: ESOMEPRAZOLE
     Indication: PRODUCT USED FOR UNKNOWN INDICATION
     Dosage: 10 MG, 1X/DAY
  3. DIAZEPAM. [Concomitant]
     Active Substance: DIAZEPAM
     Indication: PRODUCT USED FOR UNKNOWN INDICATION
     Dosage: 10 MG, AS NEEDED
  4. VALPROIC ACID. [Suspect]
     Active Substance: VALPROIC ACID
     Dosage: 800 MG, 2X/DAY
     Route: 048
  5. CARBASALAATCALCIUM [Concomitant]
     Active Substance: CARBASPIRIN
     Indication: PRODUCT USED FOR UNKNOWN INDICATION
     Dosage: 100 MG, 1X/DAY
  6. PHENYTOIN. [Concomitant]
     Active Substance: PHENYTOIN
     Indication: PRODUCT USED FOR UNKNOWN INDICATION
     Dosage: 75 MG, 2X/DAY
     Route: 042
  7. VALPROIC ACID. [Suspect]
     Active Substance: VALPROIC ACID
     Indication: PRODUCT USED FOR UNKNOWN INDICATION
     Dosage: 800 MG, 3X/DAY
  8. MEROPENEM. [Interacting]
     Active Substance: MEROPENEM
     Indication: PRODUCT USED FOR UNKNOWN INDICATION
     Dosage: 1000 MG, 3X/DAY
     Route: 042
  9. VALPROIC ACID. [Suspect]
     Active Substance: VALPROIC ACID
     Dosage: 800 MG, 2X/DAY
  10. PHENYTOIN. [Concomitant]
     Active Substance: PHENYTOIN
     Dosage: 75 MG, 3X/DAY
     Route: 042
  11. ATORVASTATINE                      /01326101/ [Concomitant]
     Active Substance: ATORVASTATIN
     Indication: PRODUCT USED FOR UNKNOWN INDICATION
     Dosage: 40 MG, 1X/DAY

REACTIONS (6)
  - Atelectasis [Unknown]
  - Hypoalbuminaemia [Unknown]
  - Pleural effusion [Unknown]
  - Pneumonia [Fatal]
  - Infection [Unknown]
  - Drug interaction [Unknown]
